FAERS Safety Report 4589237-9 (Version None)
Quarter: 2005Q1

REPORT INFORMATION
  Report Type: 
  Country: None (occurrence: None)
  Receive Date: 20050223
  Receipt Date: 20041216
  Transmission Date: 20050727
  Serious: Yes (Other)
  Sender: FDA-Public Use
  Company Number: FR-RB-1179-2004

PATIENT
  Age: 44 Year
  Sex: Male

DRUGS (3)
  1. BUPRENORPHINE HCL [Suspect]
     Indication: DRUG WITHDRAWAL SYNDROME
     Dosage: 2MG QD IV/SL
     Route: 042
     Dates: start: 19990101, end: 20041207
  2. BUPRENORPHINE HCL [Suspect]
     Route: 048
     Dates: start: 20041213
  3. ALPRAZOLAM [Concomitant]
     Route: 048

REACTIONS (5)
  - HYPOAESTHESIA [None]
  - INTENTIONAL MISUSE [None]
  - PARALYSIS [None]
  - VOCAL CORD PARALYSIS [None]
  - WALLENBERG SYNDROME [None]
